FAERS Safety Report 25010188 (Version 2)
Quarter: 2025Q2

REPORT INFORMATION
  Report Type: Report from Study
  Country: DE (occurrence: DE)
  Receive Date: 20250225
  Receipt Date: 20250616
  Transmission Date: 20250716
  Serious: Yes (Hospitalization, Other)
  Sender: PFIZER
  Company Number: DE-002147023-NVSC2021DE059273

PATIENT
  Sex: Female

DRUGS (14)
  1. METHOTREXATE SODIUM [Suspect]
     Active Substance: METHOTREXATE SODIUM
     Indication: Psoriatic arthropathy
     Dosage: 10 MG, WEEKLY
     Route: 065
     Dates: start: 20130101
  2. METHOTREXATE SODIUM [Suspect]
     Active Substance: METHOTREXATE SODIUM
     Indication: Psoriatic arthropathy
     Dosage: 15 MG, WEEKLY
     Route: 058
     Dates: start: 20221219
  3. ACEMETACIN [Suspect]
     Active Substance: ACEMETACIN
     Indication: Psoriatic arthropathy
     Dosage: 90 MG, WEEKLY
     Route: 065
     Dates: start: 20200415, end: 20201015
  4. ACEMETACIN [Suspect]
     Active Substance: ACEMETACIN
     Route: 065
     Dates: start: 20170601, end: 20200306
  5. COSENTYX [Suspect]
     Active Substance: SECUKINUMAB
     Indication: Psoriatic arthropathy
     Dosage: 150 MG, MONTHLY
     Route: 042
     Dates: start: 20191209
  6. ETORICOXIB [Suspect]
     Active Substance: ETORICOXIB
     Dosage: 60 MG, 1X/DAY
     Route: 065
     Dates: start: 20221114
  7. ETORICOXIB [Suspect]
     Active Substance: ETORICOXIB
     Dates: start: 20200307, end: 20200415
  8. ETORICOXIB [Suspect]
     Active Substance: ETORICOXIB
     Dates: start: 20210113
  9. ETORICOXIB [Suspect]
     Active Substance: ETORICOXIB
     Dates: start: 20210415
  10. ETORICONIO [Concomitant]
     Route: 065
     Dates: start: 20210113
  11. ETORICONIO [Concomitant]
     Route: 065
     Dates: start: 20200307, end: 20200415
  12. ETORICONIO [Concomitant]
     Route: 065
     Dates: start: 20210415
  13. METAMIZOLE SODIUM [Concomitant]
     Active Substance: METAMIZOLE SODIUM
     Route: 065
  14. MIRTAZAPINE [Concomitant]
     Active Substance: MIRTAZAPINE
     Route: 065

REACTIONS (20)
  - Meniscus injury [Recovered/Resolved]
  - Condition aggravated [Recovered/Resolved]
  - Pain [Recovered/Resolved]
  - Fibromyalgia [Recovered/Resolved]
  - Myopathy [Recovered/Resolved]
  - Diarrhoea [Unknown]
  - Influenza like illness [Unknown]
  - Gastrointestinal infection [Unknown]
  - Cough [Unknown]
  - Nasopharyngitis [Unknown]
  - Rotator cuff syndrome [Unknown]
  - Road traffic accident [Unknown]
  - Hip deformity [Unknown]
  - COVID-19 [Unknown]
  - Osteoarthritis [Unknown]
  - Eye inflammation [Unknown]
  - Gastrooesophageal reflux disease [Unknown]
  - Duodenitis [Unknown]
  - Hiatus hernia [Unknown]
  - Plantar fasciitis [Unknown]

NARRATIVE: CASE EVENT DATE: 20200430
